FAERS Safety Report 6294884-2 (Version None)
Quarter: 2009Q3

REPORT INFORMATION
  Report Type: 
  Country: None (occurrence: None)
  Receive Date: 20090803
  Receipt Date: 20090730
  Transmission Date: 20100115
  Serious: Yes (Death)
  Sender: FDA-Public Use
  Company Number: PHHY2009CA06775

PATIENT
  Sex: Male

DRUGS (3)
  1. EXJADE [Suspect]
     Indication: MYELODYSPLASTIC SYNDROME
     Dosage: 1500 MG DAILY
     Route: 048
     Dates: start: 20090201, end: 20090401
  2. EXJADE [Suspect]
     Indication: IRON OVERLOAD
  3. HYDREA [Concomitant]
     Dosage: 500 MG DAILY
     Route: 048

REACTIONS (2)
  - DEATH [None]
  - NAUSEA [None]
